FAERS Safety Report 7779380-5 (Version None)
Quarter: 2011Q3

REPORT INFORMATION
  Report Type: 
  Country: None (occurrence: None)
  Receive Date: 20110927
  Receipt Date: 20110916
  Transmission Date: 20111222
  Serious: Yes (Hospitalization)
  Sender: FDA-Public Use
  Company Number: US-BIOGENIDEC-2011BI027927

PATIENT
  Age: 55 Year
  Sex: Female

DRUGS (2)
  1. AVONEX [Suspect]
     Indication: MULTIPLE SCLEROSIS
     Route: 030
     Dates: start: 20101201
  2. AVONEX [Suspect]
     Route: 030
     Dates: start: 20080604, end: 20100201

REACTIONS (5)
  - FALL [None]
  - LIMB INJURY [None]
  - DEEP VEIN THROMBOSIS [None]
  - COORDINATION ABNORMAL [None]
  - ANKLE FRACTURE [None]
